FAERS Safety Report 14553922 (Version 1)
Quarter: 2018Q1

REPORT INFORMATION
  Report Type: Spontaneous
  Country: US (occurrence: US)
  Receive Date: 20180217
  Receipt Date: 20180217
  Transmission Date: 20180509
  Serious: Yes (Other)
  Sender: FDA-Public Use
  Company Number: None

PATIENT
  Age: 53 Year
  Sex: Female

DRUGS (1)
  1. SUPREP BOWEL PREP [Suspect]
     Active Substance: MAGNESIUM SULFATE\POTASSIUM SULFATE\SODIUM SULFATE
     Indication: PREOPERATIVE CARE
     Dates: start: 20171215

REACTIONS (5)
  - Vertigo [None]
  - Muscular weakness [None]
  - Vomiting [None]
  - Nausea [None]
  - Cognitive disorder [None]

NARRATIVE: CASE EVENT DATE: 20171215
